FAERS Safety Report 21595839 (Version 2)
Quarter: 2022Q4

REPORT INFORMATION
  Report Type: Report from Study
  Country: US (occurrence: US)
  Receive Date: 20221115
  Receipt Date: 20221115
  Transmission Date: 20230112
  Serious: No
  Sender: FDA-Public Use
  Company Number: US-ABBVIE-22K-163-4530968-00

PATIENT
  Sex: Male

DRUGS (3)
  1. HUMIRA [Suspect]
     Active Substance: ADALIMUMAB
     Indication: Product used for unknown indication
     Route: 058
  2. SKYRIZI [Suspect]
     Active Substance: RISANKIZUMAB-RZAA
     Indication: Psoriasis
     Dosage: FORM STRENGTH- 150 MG
     Route: 058
     Dates: start: 20210330
  3. BENADRYL [Concomitant]
     Active Substance: DIPHENHYDRAMINE HYDROCHLORIDE
     Indication: Product used for unknown indication

REACTIONS (3)
  - Herpes zoster [Recovered/Resolved]
  - Pruritus [Recovering/Resolving]
  - Therapeutic product effect decreased [Unknown]

NARRATIVE: CASE EVENT DATE: 20210101
